FAERS Safety Report 9718545 (Version 2)
Quarter: 2014Q3

REPORT INFORMATION
  Report Type: Spontaneous
  Country: US (occurrence: None)
  Receive Date: 20131125
  Receipt Date: 20140930
  Transmission Date: 20150326
  Serious: Yes (Hospitalization)
  Sender: FDA-Public Use
  Company Number: 2013P1021055

PATIENT
  Age: 64 Year
  Sex: Female

DRUGS (4)
  1. ESMOLOL [Concomitant]
     Active Substance: ESMOLOL HYDROCHLORIDE
  2. METOPROLOL [Concomitant]
     Active Substance: METOPROLOL
  3. HEPARIN [Suspect]
     Active Substance: HEPARIN SODIUM
     Indication: THROMBOSIS PROPHYLAXIS
     Dosage: 24 HOURS POSTOPERATIVELY
     Route: 058
  4. AMIODARONE [Concomitant]
     Active Substance: AMIODARONE

REACTIONS (14)
  - Adrenal haemorrhage [None]
  - Heparin-induced thrombocytopenia [None]
  - Depressed level of consciousness [None]
  - Pupillary light reflex tests abnormal [None]
  - Hyponatraemia [None]
  - Hydrocephalus [None]
  - Cerebral haemorrhage [None]
  - Atrial fibrillation [None]
  - Cerebral infarction [None]
  - Adrenal insufficiency [None]
  - Hypotension [None]
  - Pupils unequal [None]
  - Brain oedema [None]
  - Unresponsive to stimuli [None]
